FAERS Safety Report 8766350 (Version 1)
Quarter: 2012Q4

REPORT INFORMATION
  Report Type: 
  Country: US (occurrence: US)
  Receive Date: 20120904
  Receipt Date: 20120904
  Transmission Date: 20130627
  Serious: Yes (Hospitalization, Other)
  Sender: FDA-Public Use
  Company Number: US-009507513-2010SP053353

PATIENT

DRUGS (3)
  1. NUVARING [Suspect]
     Indication: CONTRACEPTION
     Dates: start: 200412, end: 200504
  2. NUVARING [Suspect]
     Indication: CONTRACEPTION
     Dosage: 1 DF, QM
     Route: 067
     Dates: start: 20070116, end: 200702
  3. METICORTEN [Concomitant]
     Indication: ASTHMA
     Dosage: UNK UNK, QD

REACTIONS (5)
  - Thyroid neoplasm [Unknown]
  - Pulmonary embolism [Recovered/Resolved]
  - Antiphospholipid antibodies positive [Unknown]
  - Urticaria [Unknown]
  - Dysmenorrhoea [Recovering/Resolving]
